FAERS Safety Report 10779082 (Version 1)
Quarter: 2015Q1

REPORT INFORMATION
  Report Type: Report from Study
  Country: US (occurrence: US)
  Receive Date: 20150210
  Receipt Date: 20150210
  Transmission Date: 20150721
  Serious: No
  Sender: FDA-Public Use
  Company Number: US-AMGEN-USASL2015009294

PATIENT
  Age: 23 Year
  Sex: Female

DRUGS (1)
  1. ENBREL [Suspect]
     Active Substance: ETANERCEPT
     Indication: PSORIASIS
     Dosage: MG, QWK
     Route: 065
     Dates: start: 2008

REACTIONS (6)
  - Pharyngitis streptococcal [Recovered/Resolved]
  - Asthenia [Recovered/Resolved]
  - Breath odour [Recovered/Resolved]
  - Psoriasis [Not Recovered/Not Resolved]
  - Infectious mononucleosis [Recovered/Resolved]
  - Gastroenteritis viral [Recovered/Resolved]

NARRATIVE: CASE EVENT DATE: 2014
